FAERS Safety Report 8584554-X (Version None)
Quarter: 2012Q3

REPORT INFORMATION
  Report Type: 
  Country: None (occurrence: None)
  Receive Date: 20120730
  Receipt Date: 20120712
  Transmission Date: 20120928
  Serious: Yes (Other)
  Sender: FDA-Public Use
  Company Number: TPA2012A02765

PATIENT
  Age: 75 Year
  Sex: Male

DRUGS (4)
  1. ACTOS [Suspect]
     Indication: TYPE 2 DIABETES MELLITUS
     Dosage: 45 MG
     Dates: start: 20080628, end: 20111215
  2. DIABETA [Concomitant]
  3. METFFORMIN HYDROCHLORIDE [Concomitant]
  4. LANTUS [Concomitant]

REACTIONS (1)
  - BLADDER CANCER [None]
